FAERS Safety Report 8902525 (Version 2)
Quarter: 2012Q4

REPORT INFORMATION
  Report Type: 
  Country: NG (occurrence: NG)
  Receive Date: 20121112
  Receipt Date: 20121126
  Transmission Date: 20130627
  Serious: Yes (Death, Hospitalization)
  Sender: FDA-Public Use
  Company Number: NG-PFIZER INC-2012279356

PATIENT
  Age: 44 Year
  Sex: Female

DRUGS (2)
  1. PHARMORUBICIN [Suspect]
     Indication: BREAST CANCER
     Dosage: 135 mg/m2, one cycle
     Dates: start: 2012, end: 2012
  2. CYCLOPHOSPHAMIDE [Concomitant]

REACTIONS (1)
  - Neutropenia [Fatal]
